FAERS Safety Report 9069626 (Version 3)
Quarter: 2018Q3

REPORT INFORMATION
  Report Type: Spontaneous
  Country: DK (occurrence: DK)
  Receive Date: 20130215
  Receipt Date: 20180727
  Transmission Date: 20181010
  Serious: Yes (Death, Life-Threatening, Hospitalization, Other)
  Sender: FDA-Public Use
  Company Number: PHHY2013DK014858

PATIENT
  Age: 80 Year
  Sex: Female

DRUGS (2)
  1. METHOTREXATE. [Suspect]
     Active Substance: METHOTREXATE
     Dosage: 2.5 MG, 4X/DAY
     Route: 048
  2. METHOTREXATE. [Suspect]
     Active Substance: METHOTREXATE
     Indication: RHEUMATOID ARTHRITIS
     Dosage: 2.5 MG, QID
     Route: 048

REACTIONS (8)
  - Sepsis [Fatal]
  - Incorrect dose administered [Fatal]
  - Pancytopenia [Unknown]
  - Pyrexia [Unknown]
  - Abdominal pain upper [Unknown]
  - Oral pain [Unknown]
  - Diarrhoea haemorrhagic [Unknown]
  - Toxicity to various agents [Unknown]
